FAERS Safety Report 4813824-3 (Version None)
Quarter: 2005Q4

REPORT INFORMATION
  Report Type: 
  Country: None (occurrence: None)
  Receive Date: 20051028
  Receipt Date: 20050325
  Transmission Date: 20060501
  Serious: No
  Sender: FDA-Public Use
  Company Number: US-GLAXOSMITHKLINE-A0551287A

PATIENT
  Age: 51 Year
  Sex: Female

DRUGS (11)
  1. ADVAIR DISKUS 100/50 [Suspect]
     Indication: ASTHMA
     Dosage: 1PUFF TWICE PER DAY
     Route: 055
     Dates: start: 20020801
  2. ALBUTEROL [Concomitant]
  3. THEOPHYLLINE [Concomitant]
  4. KLONOPIN [Concomitant]
  5. STELAZINE [Concomitant]
  6. EFFEXOR [Concomitant]
  7. AMITRIPTYLINE HCL [Concomitant]
  8. PEPCID [Concomitant]
  9. SKELAXIN [Concomitant]
  10. TYLENOL III [Concomitant]
  11. MULTI-VITAMINS [Concomitant]

REACTIONS (4)
  - ACCIDENTAL OVERDOSE [None]
  - BACK INJURY [None]
  - CARDIAC DISORDER [None]
  - HEART RATE IRREGULAR [None]
